FAERS Safety Report 8556056 (Version 3)
Quarter: 2014Q1

REPORT INFORMATION
  Report Type: Report from Study
  Country: US (occurrence: US)
  Receive Date: 20120510
  Receipt Date: 20140321
  Transmission Date: 20141002
  Serious: Yes (Hospitalization)
  Sender: FDA-Public Use
  Company Number: US-ALEXION-A201200872

PATIENT
  Age: 47 Year
  Sex: Female

DRUGS (1)
  1. SOLIRIS [Suspect]

REACTIONS (10)
  - Splenomegaly [Unknown]
  - Malaise [Unknown]
  - Fibrin D dimer increased [Not Recovered/Not Resolved]
  - Haemoglobin decreased [Unknown]
  - Abdominal distension [Unknown]
  - Headache [Recovered/Resolved]
  - Myalgia [Unknown]
  - Extravascular haemolysis [Unknown]
  - Platelet count decreased [Unknown]
  - Coombs test positive [Unknown]
